FAERS Safety Report 5456718-5 (Version None)
Quarter: 2007Q3

REPORT INFORMATION
  Report Type: 
  Country: None (occurrence: None)
  Receive Date: 20070918
  Receipt Date: 20070905
  Transmission Date: 20080115
  Serious: Yes (Other)
  Sender: FDA-Public Use
  Company Number: US-PFIZER INC-2007075295

PATIENT
  Sex: Male
  Weight: 75 kg

DRUGS (5)
  1. CHANTIX [Suspect]
     Indication: SMOKING CESSATION THERAPY
     Dates: start: 20070801, end: 20070801
  2. TOPROL-XL [Concomitant]
  3. PLAVIX [Concomitant]
  4. LIPITOR [Concomitant]
  5. HOMOCYSTEINE THIOLACTONE [Concomitant]

REACTIONS (4)
  - ASPHYXIA [None]
  - PSORIASIS [None]
  - SKIN HAEMORRHAGE [None]
  - SWELLING FACE [None]
